FAERS Safety Report 8799403 (Version 3)
Quarter: 2012Q4

REPORT INFORMATION
  Report Type: Report from Study
  Country: CA (occurrence: CA)
  Receive Date: 20120919
  Receipt Date: 20121109
  Transmission Date: 20130627
  Serious: Yes (Hospitalization)
  Sender: FDA-Public Use
  Company Number: CA-SANOFI-AVENTIS-2012SA056788

PATIENT
  Age: 68 Year
  Sex: Female
  Weight: 62.7 kg

DRUGS (13)
  1. OXALIPLATIN [Suspect]
     Indication: METASTATIC COLORECTAL CANCER
     Route: 042
     Dates: start: 20120501, end: 20120501
  2. OXALIPLATIN [Suspect]
     Indication: METASTATIC COLORECTAL CANCER
     Route: 042
     Dates: start: 20120712, end: 20120712
  3. INVESTIGATIONAL DRUG [Suspect]
     Indication: METASTATIC COLORECTAL CANCER
     Route: 042
     Dates: start: 20120501, end: 20120501
  4. INVESTIGATIONAL DRUG [Suspect]
     Indication: METASTATIC COLORECTAL CANCER
     Route: 042
     Dates: start: 20120712, end: 20120712
  5. 5-FU [Suspect]
     Indication: METASTATIC COLORECTAL CANCER
     Dosage: on day 1 of each cycle.
     Route: 040
     Dates: start: 20120501, end: 20120501
  6. 5-FU [Suspect]
     Indication: METASTATIC COLORECTAL CANCER
     Dosage: on day 1 and 2.
     Route: 041
     Dates: start: 20120501, end: 20120502
  7. 5-FU [Suspect]
     Indication: METASTATIC COLORECTAL CANCER
     Route: 041
     Dates: start: 20120712, end: 20120712
  8. FOLINIC ACID [Suspect]
     Indication: METASTATIC COLORECTAL CANCER
     Dosage: on day 1 of each cycle
     Route: 042
     Dates: start: 20120501, end: 20120501
  9. FOLINIC ACID [Suspect]
     Indication: METASTATIC COLORECTAL CANCER
     Route: 042
     Dates: start: 20120712, end: 20120712
  10. ADVAIR [Concomitant]
     Route: 055
  11. ALENDRONATE [Concomitant]
     Dates: start: 2009
  12. MIRTAZAPINE [Concomitant]
     Dates: start: 2011
  13. ANASTROZOLE [Concomitant]
     Dates: start: 2007

REACTIONS (3)
  - Pleural effusion [Recovered/Resolved with Sequelae]
  - Pleural effusion [Recovered/Resolved]
  - Pulmonary embolism [Recovered/Resolved]
